FAERS Safety Report 8848342 (Version 1)
Quarter: 2012Q4

REPORT INFORMATION
  Report Type: 
  Country: IR (occurrence: IR)
  Receive Date: 20121019
  Receipt Date: 20121019
  Transmission Date: 20130627
  Serious: Yes (Other)
  Sender: FDA-Public Use
  Company Number: IR-PAR PHARMACEUTICAL, INC-2012SCPR004667

PATIENT

DRUGS (3)
  1. OLANZAPINE [Suspect]
     Indication: SCHIZOPHRENIA
     Dosage: 5 mg/ day
     Route: 065
  2. OLANZAPINE [Suspect]
     Dosage: 20 mg/ day
     Route: 065
  3. OLANZAPINE [Suspect]
     Dosage: 15 mg/ day
     Route: 065

REACTIONS (1)
  - Somnambulism [Recovered/Resolved]
